FAERS Safety Report 5317551-8 (Version None)
Quarter: 2007Q2

REPORT INFORMATION
  Report Type: 
  Country: None (occurrence: None)
  Receive Date: 20070507
  Receipt Date: 20070425
  Transmission Date: 20071010
  Serious: Yes (Hospitalization)
  Sender: FDA-Public Use
  Company Number: PHHO2007GB01935

PATIENT
  Age: 70 Year
  Sex: Male
  Weight: 105 kg

DRUGS (8)
  1. EXJADE [Suspect]
     Indication: BLOOD IRON INCREASED
     Route: 048
     Dates: start: 20061024, end: 20061220
  2. EXJADE [Suspect]
     Dosage: NO TREATMENT
     Dates: start: 20061221
  3. ASPIRIN [Suspect]
     Dosage: 75 MG, UNK
     Route: 048
     Dates: start: 20010101
  4. ALLOPURINOL [Concomitant]
     Dosage: 100 MG, UNK
     Dates: start: 19970101
  5. ENALAPRIL [Concomitant]
     Dosage: 20 MG, UNK
     Dates: start: 19980101
  6. DOXAZOSIN MESYLATE [Concomitant]
     Dosage: 2 MG, UNK
     Dates: start: 20040101
  7. FRUSEMIDE [Concomitant]
     Dosage: 20 MG, UNK
     Dates: start: 20040101
  8. AMLODIPINE [Concomitant]
     Dosage: 10 MG, UNK
     Dates: start: 20060101

REACTIONS (10)
  - ABDOMINAL PAIN UPPER [None]
  - DUODENITIS [None]
  - GASTRIC ANTRAL VASCULAR ECTASIA [None]
  - GASTRIC ULCER [None]
  - HAEMATEMESIS [None]
  - LIVER FUNCTION TEST ABNORMAL [None]
  - NAUSEA [None]
  - OESOPHAGEAL ULCER [None]
  - OESOPHAGITIS [None]
  - VOMITING [None]
